FAERS Safety Report 9458912 (Version 1)
Quarter: 2013Q3

REPORT INFORMATION
  Report Type: Spontaneous
  Country: DE (occurrence: DE)
  Receive Date: 20130814
  Receipt Date: 20130814
  Transmission Date: 20140515
  Serious: Yes (Other)
  Sender: FDA-Public Use
  Company Number: DE-GLAXOSMITHKLINE-D0080790A

PATIENT
  Sex: Male

DRUGS (1)
  1. LAMOTRIGINE [Suspect]
     Indication: EPILEPSY
     Dosage: 75MG PER DAY
     Route: 063

REACTIONS (3)
  - Diarrhoea neonatal [Recovered/Resolved]
  - Faeces discoloured [Recovered/Resolved]
  - Exposure during breast feeding [Unknown]
